FAERS Safety Report 9786438 (Version 1)
Quarter: 2013Q4

REPORT INFORMATION
  Report Type: Spontaneous
  Country: CH (occurrence: None)
  Receive Date: 20131226
  Receipt Date: 20131226
  Transmission Date: 20140711
  Serious: Yes (Death)
  Sender: FDA-Public Use
  Company Number: 20130720

PATIENT
  Sex: Male

DRUGS (1)
  1. VENOFER [Suspect]
     Indication: PRODUCT USED FOR UNKNOWN INDICATION
     Dosage: 44 AMPOULES WERE PRESCRIBED INTRAVENOUS
     Dates: start: 2012, end: 2012

REACTIONS (5)
  - Nephropathy [None]
  - Dialysis [None]
  - Off label use [None]
  - Wrong technique in drug usage process [None]
  - Extrasystoles [None]
